FAERS Safety Report 13298107 (Version 1)
Quarter: 2017Q1

REPORT INFORMATION
  Report Type: Spontaneous
  Country: JP (occurrence: JP)
  Receive Date: 20170306
  Receipt Date: 20170306
  Transmission Date: 20170428
  Serious: Yes (Life-Threatening, Hospitalization, Other)
  Sender: FDA-Public Use
  Company Number: JP-PFIZER INC-2017090351

PATIENT
  Age: 70 Year
  Sex: Female

DRUGS (5)
  1. ACETYLSALICYLIC ACID [Suspect]
     Active Substance: ASPIRIN
     Indication: CAPSULAR WARNING SYNDROME
     Dosage: 100 MG, DAILY
  2. ATORVASTATIN CALCIUM. [Suspect]
     Active Substance: ATORVASTATIN CALCIUM
     Indication: CAPSULAR WARNING SYNDROME
     Dosage: 10 MG, DAILY
  3. EDARAVONE [Suspect]
     Active Substance: EDARAVONE
     Indication: CAPSULAR WARNING SYNDROME
     Dosage: 60 MG, DAILY
  4. ARGATROBAN. [Suspect]
     Active Substance: ARGATROBAN
     Indication: CAPSULAR WARNING SYNDROME
     Dosage: 60 MG, DAILY
  5. CILOSTAZOL. [Suspect]
     Active Substance: CILOSTAZOL
     Indication: CAPSULAR WARNING SYNDROME
     Dosage: 200 MG, DAILY

REACTIONS (2)
  - Cerebral infarction [Unknown]
  - Drug ineffective [Unknown]
